FAERS Safety Report 5723473-0 (Version None)
Quarter: 2008Q2

REPORT INFORMATION
  Report Type: 
  Country: None (occurrence: None)
  Receive Date: 20080425
  Receipt Date: 20071002
  Transmission Date: 20081010
  Serious: Yes (Other)
  Sender: FDA-Public Use
  Company Number: 2007332239

PATIENT
  Age: 38 Year
  Sex: Female
  Weight: 65.8 kg

DRUGS (2)
  1. BENADRYL [Suspect]
     Dosage: 12 TABLETS 1 TIME,ORAL
     Route: 048
     Dates: start: 20071001, end: 20071001
  2. DRUG, UNSPECIFIED (DRUG, UNSPECIFIED) [Concomitant]

REACTIONS (1)
  - OVERDOSE [None]
